FAERS Safety Report 5223859-7 (Version None)
Quarter: 2007Q1

REPORT INFORMATION
  Report Type: 
  Country: None (occurrence: None)
  Receive Date: 20070130
  Receipt Date: 20070125
  Transmission Date: 20070707
  Serious: Yes (Other)
  Sender: FDA-Public Use
  Company Number: CH-BRISTOL-MYERS SQUIBB COMPANY-13659081

PATIENT
  Age: 88 Year
  Sex: Female

DRUGS (3)
  1. MAXIPIME [Suspect]
     Indication: DIVERTICULAR PERFORATION
     Route: 041
     Dates: start: 20061228, end: 20061230
  2. NEXIUM [Concomitant]
     Indication: PROPHYLAXIS
     Route: 048
     Dates: start: 20061228, end: 20070107
  3. FLAGYL [Concomitant]
     Indication: DIVERTICULAR PERFORATION
     Route: 041
     Dates: start: 20061228, end: 20061230

REACTIONS (2)
  - ENCEPHALOPATHY [None]
  - SOMNOLENCE [None]
